FAERS Safety Report 4555429-8 (Version None)
Quarter: 2005Q1

REPORT INFORMATION
  Report Type: 
  Country: None (occurrence: None)
  Receive Date: 20050118
  Receipt Date: 20050118
  Transmission Date: 20050727
  Serious: Yes (Life-Threatening, Hospitalization)
  Sender: FDA-Public Use
  Company Number: None

PATIENT
  Age: 74 Year
  Sex: Male
  Weight: 88.905 kg

DRUGS (3)
  1. WARFARIN SODIUM [Suspect]
     Indication: ATRIAL FIBRILLATION
     Dosage: 2.5 MG DAILY ORAL
     Route: 048
     Dates: start: 20001211, end: 20041212
  2. AMIODARONE HCL [Concomitant]
  3. AZITHROMYCIN [Concomitant]

REACTIONS (3)
  - HAEMOPTYSIS [None]
  - PRODUCTIVE COUGH [None]
  - PULMONARY ALVEOLAR HAEMORRHAGE [None]
